FAERS Safety Report 9301953 (Version 1)
Quarter: 2013Q2

REPORT INFORMATION
  Report Type: Spontaneous
  Country: BR (occurrence: BR)
  Receive Date: 20130521
  Receipt Date: 20130521
  Transmission Date: 20140414
  Serious: Yes (Other)
  Sender: FDA-Public Use
  Company Number: BR-MYLANLABS-2013S1010360

PATIENT
  Age: 63 Year
  Sex: Female

DRUGS (9)
  1. PANITUMUMAB [Suspect]
     Indication: ADENOCARCINOMA OF COLON
     Dosage: 6 MG/KG EVERY 2 WEEKS
     Route: 042
  2. CETUXIMAB [Suspect]
     Indication: ADENOCARCINOMA OF COLON
     Route: 065
  3. FLUOROURACIL [Suspect]
     Indication: ADENOCARCINOMA OF COLON
     Route: 065
  4. FLUOROURACIL [Suspect]
     Indication: ADENOCARCINOMA OF COLON
     Route: 040
  5. FOLINIC ACID [Suspect]
     Indication: ADENOCARCINOMA OF COLON
     Route: 065
  6. FOLINIC ACID [Suspect]
     Indication: ADENOCARCINOMA OF COLON
     Route: 040
  7. OXALIPLATIN [Suspect]
     Indication: ADENOCARCINOMA OF COLON
     Route: 065
  8. BEVACIZUMAB [Concomitant]
     Indication: ADENOCARCINOMA OF COLON
     Route: 065
  9. IRINOTECAN [Concomitant]
     Indication: ADENOCARCINOMA OF COLON
     Route: 065

REACTIONS (8)
  - Splenomegaly [Unknown]
  - Neutropenia [Unknown]
  - Dermatitis acneiform [Recovering/Resolving]
  - Nausea [Unknown]
  - Vomiting [Unknown]
  - Stomatitis [Unknown]
  - Hydronephrosis [Unknown]
  - Diarrhoea [Unknown]
